FAERS Safety Report 12599013 (Version 1)
Quarter: 2016Q3

REPORT INFORMATION
  Report Type: Spontaneous
  Country: FR (occurrence: FR)
  Receive Date: 20160726
  Receipt Date: 20160726
  Transmission Date: 20161109
  Serious: Yes (Hospitalization)
  Sender: FDA-Public Use
  Company Number: FR-ROCHE-1800386

PATIENT
  Age: 86 Year
  Sex: Male

DRUGS (17)
  1. ZELITREX [Suspect]
     Active Substance: VALACYCLOVIR HYDROCHLORIDE
     Indication: HERPES VIRUS INFECTION
     Route: 065
     Dates: start: 20160524, end: 20160628
  2. IMODIUM [Concomitant]
     Active Substance: LOPERAMIDE HYDROCHLORIDE
     Route: 065
     Dates: start: 20160513, end: 20160708
  3. CELLCEPT [Suspect]
     Active Substance: MYCOPHENOLATE MOFETIL\MYCOPHENOLATE MOFETIL HYDROCHLORIDE
     Route: 065
     Dates: start: 201601, end: 20160224
  4. LOVENOX [Concomitant]
     Active Substance: ENOXAPARIN SODIUM
     Route: 065
     Dates: start: 20160612, end: 20160630
  5. LANSOPRAZOLE. [Suspect]
     Active Substance: LANSOPRAZOLE
     Indication: PRODUCT USED FOR UNKNOWN INDICATION
     Route: 048
     Dates: start: 20160530, end: 20160627
  6. CORTANCYL [Concomitant]
     Active Substance: PREDNISONE
     Dosage: PER DAY
     Route: 065
  7. TIORFAN [Concomitant]
     Active Substance: RACECADOTRIL
     Route: 065
     Dates: start: 20160616, end: 20160708
  8. CALCIPARINE [Concomitant]
     Active Substance: HEPARIN CALCIUM
     Route: 065
     Dates: start: 20160531, end: 20160708
  9. LASILIX [Concomitant]
     Active Substance: FUROSEMIDE
     Dosage: REINTRODUCED FROM 13-JUN-2016 (DAY 10), DISCONTINUED ON 29-JUN-2016, ADMINISTERED AGAIN ON 02-JUL, T
     Route: 065
  10. TEGRETOL [Suspect]
     Active Substance: CARBAMAZEPINE
     Indication: TRIGEMINAL NEURALGIA
     Route: 065
     Dates: start: 20160523, end: 20160629
  11. MESTINON [Concomitant]
     Active Substance: PYRIDOSTIGMINE BROMIDE
     Route: 065
     Dates: start: 20151110, end: 20160624
  12. CELLCEPT [Suspect]
     Active Substance: MYCOPHENOLATE MOFETIL\MYCOPHENOLATE MOFETIL HYDROCHLORIDE
     Indication: MUSCULAR WEAKNESS
     Route: 065
     Dates: start: 20160617, end: 20160628
  13. URBANYL [Suspect]
     Active Substance: CLOBAZAM
     Indication: TRIGEMINAL NEURALGIA
     Route: 065
     Dates: start: 20160516, end: 20160627
  14. IMUREL [Concomitant]
     Active Substance: AZATHIOPRINE SODIUM
  15. AERIUS [Concomitant]
     Active Substance: DESLORATADINE
  16. BELLADONNA [Concomitant]
     Active Substance: ATROPA BELLADONNA
     Dosage: THERAPY RECEIVED ON 18, 23, AND 24-JUN-2016
     Route: 065
  17. CLAIRYG [Concomitant]
     Active Substance: HUMAN IMMUNOGLOBULIN G
     Dosage: 1 INJECTION
     Route: 065
     Dates: start: 20160520

REACTIONS (5)
  - Rash morbilliform [Recovered/Resolved]
  - Eosinophilia [Recovering/Resolving]
  - Hepatocellular injury [Recovering/Resolving]
  - Off label use [Unknown]
  - Gamma-glutamyltransferase increased [Recovering/Resolving]

NARRATIVE: CASE EVENT DATE: 20160623
